FAERS Safety Report 7508789-X (Version None)
Quarter: 2011Q2

REPORT INFORMATION
  Report Type: 
  Country: None (occurrence: None)
  Receive Date: 20110527
  Receipt Date: 20110225
  Transmission Date: 20111010
  Serious: No
  Sender: FDA-Public Use
  Company Number: A0915392A

PATIENT
  Sex: Male

DRUGS (6)
  1. ASPIRIN [Concomitant]
  2. ATENOLOL [Concomitant]
  3. FAMOTIDINE [Concomitant]
  4. SIMVASTATIN [Concomitant]
  5. VENTOLIN [Suspect]
     Indication: BRONCHIAL DISORDER
     Dosage: 1PUFF TWICE PER DAY
     Route: 055
     Dates: start: 20100101
  6. LISINOPRIL [Concomitant]

REACTIONS (2)
  - DYSPHONIA [None]
  - HYPOTENSION [None]
